FAERS Safety Report 21329217 (Version 1)
Quarter: 2022Q3

REPORT INFORMATION
  Report Type: Spontaneous
  Country: US (occurrence: None)
  Receive Date: 20220913
  Receipt Date: 20220913
  Transmission Date: 20221026
  Serious: Yes (Hospitalization)
  Sender: FDA-Public Use
  Company Number: None

PATIENT
  Age: 71 Year
  Sex: Female
  Weight: 63.45 kg

DRUGS (1)
  1. EVUSHELD [Suspect]
     Active Substance: CILGAVIMAB\TIXAGEVIMAB
     Indication: COVID-19 prophylaxis
     Dosage: OTHER FREQUENCY : Q6MONITHS;?
     Route: 030
     Dates: start: 20220908, end: 20220908

REACTIONS (6)
  - Chills [None]
  - Pyrexia [None]
  - Cough [None]
  - Hypoxia [None]
  - Lung infiltration [None]
  - Respiratory distress [None]

NARRATIVE: CASE EVENT DATE: 20220911
